FAERS Safety Report 4444672-4 (Version None)
Quarter: 2004Q3

REPORT INFORMATION
  Report Type: 
  Country: None (occurrence: None)
  Receive Date: 20040907
  Receipt Date: 20040824
  Transmission Date: 20050211
  Serious: Yes (Hospitalization, Other)
  Sender: FDA-Public Use
  Company Number: 2004059893

PATIENT
  Age: 60 Year
  Sex: Male

DRUGS (3)
  1. PHENYTOIN [Suspect]
     Indication: GRAND MAL CONVULSION
     Dosage: 430 MG (2 IN 1 D)
  2. FLUOROURACIL [Suspect]
     Indication: COLON CANCER
     Dosage: 370 MG/M2 (370 MG/M2 1 IN1 D)
  3. LEUCOVORIN CALCIUM [Suspect]
     Indication: COLON CANCER
     Dosage: 20 MG/M2 (20 MG/M2 1 IN 1 D)

REACTIONS (7)
  - ABASIA [None]
  - ANTICONVULSANT DRUG LEVEL BELOW THERAPEUTIC [None]
  - ATAXIA [None]
  - COLON CANCER STAGE III [None]
  - CONVULSION [None]
  - DIZZINESS [None]
  - DYSSTASIA [None]
